FAERS Safety Report 10429680 (Version 1)
Quarter: 2014Q3

REPORT INFORMATION
  Report Type: Spontaneous
  Country: US (occurrence: None)
  Receive Date: 20140902
  Receipt Date: 20140902
  Transmission Date: 20150326
  Serious: Yes (Other)
  Sender: FDA-Public Use
  Company Number: None

PATIENT
  Age: 71 Year
  Sex: Female
  Weight: 63.5 kg

DRUGS (3)
  1. ANASTROZOLE. [Suspect]
     Active Substance: ANASTROZOLE
     Indication: POSTMENOPAUSE
     Route: 048
     Dates: start: 20140730, end: 20140901
  2. ANASTROZOLE. [Suspect]
     Active Substance: ANASTROZOLE
     Indication: INTRADUCTAL PROLIFERATIVE BREAST LESION
     Route: 048
     Dates: start: 20140730, end: 20140901
  3. ANASTROZOLE. [Suspect]
     Active Substance: ANASTROZOLE
     Indication: POSTOPERATIVE CARE
     Route: 048
     Dates: start: 20140730, end: 20140901

REACTIONS (4)
  - Hypoaesthesia oral [None]
  - Hypoaesthesia [None]
  - Oedema peripheral [None]
  - Speech disorder [None]

NARRATIVE: CASE EVENT DATE: 20140820
